FAERS Safety Report 10171493 (Version 1)
Quarter: 2014Q2

REPORT INFORMATION
  Report Type: Spontaneous
  Country: DK (occurrence: DK)
  Receive Date: 20140514
  Receipt Date: 20140514
  Transmission Date: 20141212
  Serious: Yes (Hospitalization)
  Sender: FDA-Public Use
  Company Number: DK-SA-2014SA058138

PATIENT
  Age: 68 Year
  Sex: Male

DRUGS (2)
  1. PLAVIX [Suspect]
     Indication: THROMBOSIS
     Dosage: STYRKE: 75 MG
     Route: 048
     Dates: end: 20140126
  2. HJERTEMAGNYL [Concomitant]
     Indication: THROMBOSIS

REACTIONS (5)
  - Abdominal distension [Recovered/Resolved]
  - Abdominal pain upper [Recovered/Resolved]
  - Diarrhoea [Recovered/Resolved]
  - Gastritis [Recovered/Resolved]
  - Dyspepsia [Recovered/Resolved]
